FAERS Safety Report 15705607 (Version 1)
Quarter: 2018Q4

REPORT INFORMATION
  Report Type: Spontaneous
  Country: IT (occurrence: IT)
  Receive Date: 20181210
  Receipt Date: 20181210
  Transmission Date: 20190205
  Serious: Yes (Other)
  Sender: FDA-Public Use
  Company Number: IT-ELI_LILLY_AND_COMPANY-IT201811014386

PATIENT
  Age: 81 Year
  Sex: Female

DRUGS (5)
  1. CALCIUM [Interacting]
     Active Substance: CALCIUM
     Indication: PRODUCT USED FOR UNKNOWN INDICATION
     Dosage: UNK UNK, UNKNOWN
     Route: 065
  2. DIBASE [Concomitant]
     Active Substance: CHOLECALCIFEROL
     Indication: PRODUCT USED FOR UNKNOWN INDICATION
  3. CARDICOR [Concomitant]
     Active Substance: BISOPROLOL
     Indication: EXTRASYSTOLES
  4. VALSARTAN. [Concomitant]
     Active Substance: VALSARTAN
     Indication: HYPERTENSION
  5. FORSTEO 250UG/ML [Suspect]
     Active Substance: TERIPARATIDE
     Indication: PRODUCT USED FOR UNKNOWN INDICATION
     Dosage: UNK UNK, UNKNOWN
     Route: 065
     Dates: start: 201809

REACTIONS (8)
  - Irritable bowel syndrome [Unknown]
  - Asthenia [Unknown]
  - Hyperchlorhydria [Unknown]
  - Drug interaction [Unknown]
  - Fatigue [Unknown]
  - Dysentery [Not Recovered/Not Resolved]
  - Blood pressure increased [Unknown]
  - Gastrooesophageal reflux disease [Unknown]
